FAERS Safety Report 8405615 (Version 3)
Quarter: 2013Q2

REPORT INFORMATION
  Report Type: Report from Study
  Country: US (occurrence: US)
  Receive Date: 20120214
  Receipt Date: 20130403
  Transmission Date: 20140414
  Serious: Yes (Hospitalization)
  Sender: FDA-Public Use
  Company Number: US-ROCHE-777526

PATIENT
  Age: 60 Year
  Sex: Female
  Weight: 58.6 kg

DRUGS (16)
  1. VISMODEGIB [Suspect]
     Indication: BASAL CELL CARCINOMA
     Dosage: 150 UNK, QD
     Route: 048
     Dates: start: 20091029, end: 20110502
  2. GARLIC [Concomitant]
  3. EVENING PRIMROSE OIL [Concomitant]
  4. GINSENG [Concomitant]
  5. CHROMIUM PICOLINATE [Concomitant]
  6. OMEGA 3-6-9 [Concomitant]
  7. VITAMIN A [Concomitant]
  8. B12 COMPLEX [Concomitant]
  9. FOLIC ACID [Concomitant]
  10. PLEO NOT [Concomitant]
  11. VICODIN [Concomitant]
  12. MOXIFLOXACIN [Concomitant]
     Route: 065
     Dates: start: 20101207
  13. CLOROX BLEACH [Concomitant]
  14. BACITRACIN + POLYMYXIN B SULFATE [Concomitant]
     Route: 065
     Dates: start: 20090921
  15. SILVADENE CREAM [Concomitant]
     Route: 065
     Dates: start: 20100513
  16. L-GLUTAMINE [Concomitant]
     Route: 065
     Dates: start: 20100119

REACTIONS (1)
  - Osteomyelitis [Recovered/Resolved]
